FAERS Safety Report 22108510 (Version 1)
Quarter: 2023Q1

REPORT INFORMATION
  Report Type: Other
  Country: US (occurrence: US)
  Receive Date: 20230317
  Receipt Date: 20230317
  Transmission Date: 20230417
  Serious: Yes (Other)
  Sender: FDA-Public Use
  Company Number: US-Bion-011347

PATIENT
  Sex: Male

DRUGS (4)
  1. VALPROIC ACID [Suspect]
     Active Substance: VALPROIC ACID
     Indication: Rhabdoid tumour of the kidney
  2. ETOPOSIDE [Concomitant]
     Active Substance: ETOPOSIDE
     Indication: Rhabdoid tumour of the kidney
     Route: 048
  3. CYCLOPHOSPHAMIDE [Concomitant]
     Active Substance: CYCLOPHOSPHAMIDE
     Indication: Rhabdoid tumour of the kidney
     Route: 048
  4. CELECOXIB [Concomitant]
     Active Substance: CELECOXIB
     Indication: Rhabdoid tumour of the kidney
     Route: 048

REACTIONS (1)
  - Myelodysplastic syndrome [Unknown]
